FAERS Safety Report 6890129-0 (Version None)
Quarter: 2010Q3

REPORT INFORMATION
  Report Type: 
  Country: None (occurrence: None)
  Receive Date: 20100730
  Receipt Date: 20080801
  Transmission Date: 20110219
  Serious: No
  Sender: FDA-Public Use
  Company Number: US-PFIZER INC-2008064684

PATIENT
  Age: 80 Year
  Sex: Female
  Weight: 45.454 kg

DRUGS (2)
  1. LIPITOR [Suspect]
     Indication: HYPERCHOLESTEROLAEMIA
     Dates: end: 20080701
  2. ANTIHYPERTENSIVES [Concomitant]

REACTIONS (3)
  - CHILLS [None]
  - HYPOTENSION [None]
  - WITHDRAWAL SYNDROME [None]
